FAERS Safety Report 7915859-0 (Version None)
Quarter: 2011Q4

REPORT INFORMATION
  Report Type: 
  Country: None (occurrence: None)
  Receive Date: 20111115
  Receipt Date: 20111108
  Transmission Date: 20120403
  Serious: Yes (Hospitalization)
  Sender: FDA-Public Use
  Company Number: CA-ROCHE-790219

PATIENT
  Sex: Female
  Weight: 56 kg

DRUGS (8)
  1. ACTEMRA [Suspect]
     Indication: RHEUMATOID ARTHRITIS
     Route: 042
     Dates: start: 20110105, end: 20110907
  2. CELEBREX [Concomitant]
  3. PREDNISONE [Concomitant]
  4. ARAVA [Concomitant]
  5. PLAQUENIL [Concomitant]
  6. RABEPRAZOLE SODIUM [Concomitant]
  7. ELAVIL [Concomitant]
  8. CALCIUM SUPPLEMENT [Concomitant]

REACTIONS (2)
  - HIP ARTHROPLASTY [None]
  - KIDNEY INFECTION [None]
